FAERS Safety Report 16098558 (Version 2)
Quarter: 2019Q2

REPORT INFORMATION
  Report Type: Spontaneous
  Country: US (occurrence: US)
  Receive Date: 20190321
  Receipt Date: 20190514
  Transmission Date: 20190711
  Serious: No
  Sender: FDA-Public Use
  Company Number: US-BAUSCH-BL-2019-007070

PATIENT
  Age: 60 Year
  Sex: Male
  Weight: 149.82 kg

DRUGS (3)
  1. ATORVASTATIN [Concomitant]
     Active Substance: ATORVASTATIN
     Indication: PRODUCT USED FOR UNKNOWN INDICATION
  2. MESALAMINE. [Suspect]
     Active Substance: MESALAMINE
     Dosage: 4 PILLS OF 1.2GM EVERY MORNING
     Route: 065
     Dates: start: 2019
  3. MESALAMINE. [Suspect]
     Active Substance: MESALAMINE
     Indication: COLITIS ULCERATIVE
     Dosage: TOOK FOR ABOUT SIX MONTHS. 4 PILLS OF 1.2GM EVERY MORNING
     Route: 065
     Dates: start: 201809, end: 2019

REACTIONS (1)
  - Drug ineffective [Unknown]

NARRATIVE: CASE EVENT DATE: 201809
